FAERS Safety Report 7224872-0 (Version None)
Quarter: 2011Q1

REPORT INFORMATION
  Report Type: 
  Country: None (occurrence: None)
  Receive Date: 20110113
  Receipt Date: 20101101
  Transmission Date: 20110831
  Serious: Yes (Other)
  Sender: FDA-Public Use
  Company Number: JP-ROCHE-750797

PATIENT

DRUGS (1)
  1. VALGANCICLOVIR [Suspect]
     Route: 065

REACTIONS (7)
  - HYPERTRIGLYCERIDAEMIA [None]
  - HYPERURICAEMIA [None]
  - LIVER DISORDER [None]
  - RENAL FAILURE ACUTE [None]
  - PANCYTOPENIA [None]
  - HYPERBILIRUBINAEMIA [None]
  - ANGIOIMMUNOBLASTIC T-CELL LYMPHOMA [None]
